FAERS Safety Report 4921405-6 (Version None)
Quarter: 2006Q1

REPORT INFORMATION
  Report Type: 
  Country: None (occurrence: None)
  Receive Date: 20060222
  Receipt Date: 20060222
  Transmission Date: 20060701
  Serious: Yes (Death)
  Sender: FDA-Public Use
  Company Number: None

PATIENT
  Sex: Male
  Weight: 84.09 kg

DRUGS (1)
  1. GEMCITABINE [Suspect]
     Indication: ADENOCARCINOMA PANCREAS
     Dosage: 2010 MG
     Dates: start: 20060209, end: 20060209

REACTIONS (4)
  - BLOOD PRESSURE DECREASED [None]
  - CARDIAC ARREST [None]
  - HEART RATE INCREASED [None]
  - OXYGEN SATURATION DECREASED [None]
